FAERS Safety Report 23683678 (Version 2)
Quarter: 2024Q2

REPORT INFORMATION
  Report Type: Spontaneous
  Country: US (occurrence: None)
  Receive Date: 20240328
  Receipt Date: 20240425
  Transmission Date: 20240717
  Serious: No
  Sender: FDA-Public Use
  Company Number: 2024A070432

PATIENT

DRUGS (1)
  1. SELUMETINIB [Suspect]
     Active Substance: SELUMETINIB
     Route: 048

REACTIONS (1)
  - Acne [Unknown]
